FAERS Safety Report 7315228-0 (Version None)
Quarter: 2011Q1

REPORT INFORMATION
  Report Type: 
  Country: None (occurrence: None)
  Receive Date: 20110217
  Receipt Date: 20110217
  Transmission Date: 20110831
  Serious: Yes (Life-Threatening, Hospitalization, Disabling)
  Sender: FDA-Public Use
  Company Number: None

PATIENT
  Age: 25 Year
  Sex: Male
  Weight: 97.5234 kg

DRUGS (1)
  1. KINERET [Suspect]
     Indication: STILL'S DISEASE ADULT ONSET
     Dosage: 100 MG DAILY SC (057)
     Route: 058
     Dates: start: 20100325, end: 20100625

REACTIONS (49)
  - MULTIPLE-DRUG RESISTANCE [None]
  - SOFT TISSUE NEOPLASM [None]
  - MUSCLE DISORDER [None]
  - NAUSEA [None]
  - CENTRAL NERVOUS SYSTEM LESION [None]
  - ORAL CANDIDIASIS [None]
  - PRODUCTIVE COUGH [None]
  - PULMONARY CAVITATION [None]
  - SERUM FERRITIN INCREASED [None]
  - RENAL DISORDER [None]
  - CLONUS [None]
  - SCAN GALLIUM ABNORMAL [None]
  - MYCOBACTERIUM TEST POSITIVE [None]
  - WHITE BLOOD CELL COUNT DECREASED [None]
  - BAND NEUTROPHIL PERCENTAGE INCREASED [None]
  - MONOCYTE PERCENTAGE INCREASED [None]
  - GENERAL PHYSICAL HEALTH DETERIORATION [None]
  - EJECTION FRACTION DECREASED [None]
  - PERINEPHRIC COLLECTION [None]
  - VOMITING [None]
  - VASOGENIC CEREBRAL OEDEMA [None]
  - INSOMNIA [None]
  - CUSHINGOID [None]
  - HAEMOGLOBIN DECREASED [None]
  - SINUS TACHYCARDIA [None]
  - INTRACARDIAC MASS [None]
  - DERMATITIS ACNEIFORM [None]
  - SPUTUM DISCOLOURED [None]
  - LUNG NEOPLASM [None]
  - PLEURAL EFFUSION [None]
  - CANDIDA TEST POSITIVE [None]
  - HEADACHE [None]
  - BLOOD ALBUMIN DECREASED [None]
  - CEREBROVASCULAR ACCIDENT [None]
  - EMBOLIC STROKE [None]
  - MITRAL VALVE INCOMPETENCE [None]
  - NOCARDIA TEST POSITIVE [None]
  - AORTIC DISORDER [None]
  - PLATELET COUNT DECREASED [None]
  - DYSPNOEA [None]
  - PARASPINAL ABSCESS [None]
  - FATIGUE [None]
  - CHEST PAIN [None]
  - ABSCESS [None]
  - MYALGIA [None]
  - HAEMOPTYSIS [None]
  - BACK PAIN [None]
  - HYPOTENSION [None]
  - PYREXIA [None]
